FAERS Safety Report 22622550 (Version 1)
Quarter: 2023Q2

REPORT INFORMATION
  Report Type: Report from Study
  Country: US (occurrence: US)
  Receive Date: 20230621
  Receipt Date: 20230621
  Transmission Date: 20230722
  Serious: Yes (Hospitalization, Other)
  Sender: FDA-Public Use
  Company Number: US-APIL-2309696US

PATIENT
  Age: 65 Year

DRUGS (1)
  1. UBRELVY [Suspect]
     Active Substance: UBROGEPANT
     Indication: Migraine
     Route: 048

REACTIONS (8)
  - Migraine [Recovered/Resolved]
  - Cerebrovascular accident [Unknown]
  - Vision blurred [Unknown]
  - Hypoaesthesia [Unknown]
  - Vertigo [Unknown]
  - Vestibular migraine [Unknown]
  - Migraine [Recovered/Resolved]
  - Migraine [Unknown]

NARRATIVE: CASE EVENT DATE: 20230615
